FAERS Safety Report 7525166-6 (Version None)
Quarter: 2011Q2

REPORT INFORMATION
  Report Type: 
  Country: None (occurrence: None)
  Receive Date: 20110606
  Receipt Date: 20110518
  Transmission Date: 20111010
  Serious: Yes (Death, Other)
  Sender: FDA-Public Use
  Company Number: US-GENZYME-MOZO-1000523

PATIENT

DRUGS (4)
  1. MOZOBIL [Suspect]
     Indication: ACUTE MYELOID LEUKAEMIA
  2. CLOFARABINE [Suspect]
     Indication: ACUTE MYELOID LEUKAEMIA
     Dosage: 30 MG/M2, QD
     Route: 042
  3. CLOFARABINE [Suspect]
     Dosage: 20 MG/M2, QD
  4. MOZOBIL [Suspect]
     Indication: HAEMATOPOIETIC STEM CELL MOBILISATION
     Dosage: 240 MCG/KG, QD
     Route: 058

REACTIONS (2)
  - FUNGAL INFECTION [None]
  - DEATH [None]
